FAERS Safety Report 8881490 (Version 1)
Quarter: 2012Q4

REPORT INFORMATION
  Report Type: 
  Country: JP (occurrence: JP)
  Receive Date: 20121101
  Receipt Date: 20121101
  Transmission Date: 20130627
  Serious: Yes (Hospitalization)
  Sender: FDA-Public Use
  Company Number: JP-ROCHE-1149544

PATIENT
  Age: 76 Year
  Sex: Female
  Weight: 47 kg

DRUGS (29)
  1. ACTEMRA [Suspect]
     Indication: RHEUMATOID ARTHRITIS
     Route: 041
     Dates: start: 20110629, end: 20120206
  2. ACTEMRA [Suspect]
     Indication: RHEUMATOID ARTHRITIS
     Route: 041
     Dates: start: 20120328
  3. ACTEMRA [Suspect]
     Route: 041
     Dates: start: 20120101
  4. ACTEMRA [Suspect]
     Route: 041
     Dates: start: 20120522
  5. ACTEMRA [Suspect]
     Route: 041
     Dates: start: 20120626
  6. ACTEMRA [Suspect]
     Route: 041
     Dates: start: 20120724
  7. ACTEMRA [Suspect]
     Route: 041
     Dates: start: 20120828
  8. PROGRAF [Suspect]
     Indication: RHEUMATOID ARTHRITIS
     Route: 048
     Dates: start: 20050523, end: 20050619
  9. PROGRAF [Suspect]
     Indication: RHEUMATOID ARTHRITIS
     Route: 048
     Dates: start: 20050620, end: 20060619
  10. PROGRAF [Suspect]
     Indication: RHEUMATOID ARTHRITIS
     Route: 048
     Dates: start: 20060620, end: 20070805
  11. PROGRAF [Suspect]
     Indication: RHEUMATOID ARTHRITIS
     Route: 048
     Dates: start: 20070806
  12. PREDNISOLONE [Suspect]
     Indication: RHEUMATOID ARTHRITIS
     Route: 048
     Dates: start: 1994
  13. PREDNISOLONE [Suspect]
     Route: 048
     Dates: end: 20070826
  14. PREDNISOLONE [Suspect]
     Route: 048
     Dates: start: 20070827, end: 20100628
  15. PREDNISOLONE [Suspect]
     Route: 048
     Dates: start: 20100629, end: 20110920
  16. PREDNISOLONE [Suspect]
     Route: 048
     Dates: start: 20110921, end: 20111115
  17. PREDNISOLONE [Suspect]
     Route: 048
     Dates: start: 20111116, end: 20111213
  18. PREDNISOLONE [Suspect]
     Route: 048
     Dates: start: 20111214
  19. PREDNISOLONE [Suspect]
     Route: 048
     Dates: start: 20120229
  20. PREDNISOLONE [Suspect]
     Route: 048
     Dates: start: 20120724
  21. PREDNISOLONE [Suspect]
     Route: 048
     Dates: start: 20120828
  22. RIMATIL [Concomitant]
     Indication: RHEUMATOID ARTHRITIS
     Route: 048
     Dates: start: 20040628, end: 20041024
  23. RIMATIL [Concomitant]
     Indication: RHEUMATOID ARTHRITIS
     Route: 048
     Dates: start: 20100104, end: 20100404
  24. RIMATIL [Concomitant]
     Indication: RHEUMATOID ARTHRITIS
     Route: 048
     Dates: start: 20100405
  25. TAKEPRON [Concomitant]
     Indication: SCLERODERMA
     Route: 048
     Dates: start: 20040628, end: 20120207
  26. EVISTA [Concomitant]
     Indication: OSTEOPOROSIS
     Route: 048
     Dates: start: 20040628
  27. LOXONIN [Concomitant]
     Indication: RHEUMATOID ARTHRITIS
     Route: 065
     Dates: start: 20070910, end: 20080622
  28. LOXONIN [Concomitant]
     Indication: RHEUMATOID ARTHRITIS
     Route: 065
     Dates: start: 20110307, end: 20110921
  29. MYSLEE [Concomitant]
     Indication: INSOMNIA
     Route: 048
     Dates: start: 20100726

REACTIONS (3)
  - Colitis ischaemic [Recovered/Resolved]
  - Large intestine polyp [Unknown]
  - Diverticulum intestinal [Unknown]
